FAERS Safety Report 9720661 (Version 2)
Quarter: 2013Q4

REPORT INFORMATION
  Report Type: Report from Study
  Country: UZ (occurrence: UZ)
  Receive Date: 20131129
  Receipt Date: 20131202
  Transmission Date: 20140711
  Serious: Yes (Other)
  Sender: FDA-Public Use
  Company Number: PHHY2013UZ136756

PATIENT
  Sex: Male

DRUGS (2)
  1. GLIVEC [Suspect]
     Indication: CHRONIC MYELOID LEUKAEMIA
     Dosage: 400 MG, ONCE/SINGLE
     Route: 048
  2. GLIVEC [Suspect]
     Dosage: 400 MG, DAILY
     Route: 048

REACTIONS (2)
  - HIV test positive [Unknown]
  - Blast crisis in myelogenous leukaemia [Unknown]
